FAERS Safety Report 12867687 (Version 3)
Quarter: 2016Q4

REPORT INFORMATION
  Report Type: Spontaneous
  Country: GB (occurrence: GB)
  Receive Date: 20161020
  Receipt Date: 20161115
  Transmission Date: 20170207
  Serious: Yes (Hospitalization)
  Sender: FDA-Public Use
  Company Number: GB-TEVA-703347ACC

PATIENT
  Sex: Female

DRUGS (2)
  1. HALDOL [Suspect]
     Active Substance: HALOPERIDOL
     Indication: PRODUCT USED FOR UNKNOWN INDICATION
     Route: 029
  2. HALOPERIDOL. [Suspect]
     Active Substance: HALOPERIDOL
     Indication: PRODUCT USED FOR UNKNOWN INDICATION
     Dosage: DOSAGE FORM: UNSPECIFIED
     Route: 048

REACTIONS (5)
  - Hospitalisation [Unknown]
  - Condition aggravated [Unknown]
  - Drug ineffective [Unknown]
  - Treatment noncompliance [Unknown]
  - Weight increased [Unknown]

NARRATIVE: CASE EVENT DATE: 201512
